FAERS Safety Report 9190594 (Version 2)
Quarter: 2013Q2

REPORT INFORMATION
  Report Type: Spontaneous
  Country: SV (occurrence: SV)
  Receive Date: 20130326
  Receipt Date: 20130422
  Transmission Date: 20140414
  Serious: Yes (Hospitalization)
  Sender: FDA-Public Use
  Company Number: SV-ROCHE-1205737

PATIENT
  Age: 16 Year
  Sex: Male

DRUGS (1)
  1. ROACCUTANE [Suspect]
     Indication: PRODUCT USED FOR UNKNOWN INDICATION
     Route: 065
     Dates: start: 20121119

REACTIONS (3)
  - Peritonitis [Unknown]
  - Hypertension [Unknown]
  - Appendicitis [Unknown]
